FAERS Safety Report 5103330-3 (Version None)
Quarter: 2006Q3

REPORT INFORMATION
  Report Type: 
  Country: None (occurrence: None)
  Receive Date: 20060731
  Receipt Date: 20060621
  Transmission Date: 20061208
  Serious: No
  Sender: FDA-Public Use
  Company Number: 2006PV016132

PATIENT
  Age: 61 Year
  Sex: Female
  Weight: 118.3888 kg

DRUGS (4)
  1. BYETTA [Suspect]
     Indication: DIABETES MELLITUS NON-INSULIN-DEPENDENT
     Dosage: 10 MCG; QD; SC
     Route: 058
     Dates: start: 20060616, end: 20060620
  2. GLYBURIDE AND METFORMIN HCL [Concomitant]
  3. NOVOLOG MIX 70/30 [Concomitant]
  4. CYMBALTA [Concomitant]

REACTIONS (6)
  - DRY MOUTH [None]
  - FLUSHING [None]
  - HYPERHIDROSIS [None]
  - NAUSEA [None]
  - VOMITING [None]
  - WEIGHT DECREASED [None]
